FAERS Safety Report 15121903 (Version 1)
Quarter: 2018Q3

REPORT INFORMATION
  Report Type: Spontaneous
  Country: US (occurrence: US)
  Receive Date: 20180613
  Receipt Date: 20180613
  Transmission Date: 20181010
  Serious: Yes (Other)
  Sender: FDA-Public Use
  Company Number: None

PATIENT
  Age: 34 Year
  Sex: Male
  Weight: 64.8 kg

DRUGS (2)
  1. VIVITROL [Suspect]
     Active Substance: NALTREXONE
  2. VIVITROL [Concomitant]
     Active Substance: NALTREXONE
     Dates: start: 20180605

REACTIONS (4)
  - Facial paralysis [None]
  - Drug hypersensitivity [None]
  - Ear pain [None]
  - Headache [None]

NARRATIVE: CASE EVENT DATE: 20180612
